FAERS Safety Report 15540404 (Version 1)
Quarter: 2018Q4

REPORT INFORMATION
  Report Type: Spontaneous
  Country: US (occurrence: US)
  Receive Date: 20181023
  Receipt Date: 20181023
  Transmission Date: 20190205
  Serious: No
  Sender: FDA-Public Use
  Company Number: US-PFIZER INC-2018425398

PATIENT
  Age: 59 Year
  Sex: Female
  Weight: 64 kg

DRUGS (1)
  1. GABAPENTIN. [Suspect]
     Active Substance: GABAPENTIN
     Indication: NEURALGIA
     Dosage: UNK, 1X/DAY (ONE TO THREE CAPSULES A DAY BY MOUTH AT BEDTIME)
     Route: 048

REACTIONS (3)
  - Product dispensing error [Unknown]
  - Drug ineffective [Unknown]
  - Dizziness [Unknown]
